FAERS Safety Report 7701354-0 (Version None)
Quarter: 2011Q3

REPORT INFORMATION
  Report Type: 
  Country: None (occurrence: None)
  Receive Date: 20110822
  Receipt Date: 20110805
  Transmission Date: 20111222
  Serious: Yes (Hospitalization)
  Sender: FDA-Public Use
  Company Number: PHHY2011US72012

PATIENT
  Age: 34 Year
  Sex: Female

DRUGS (2)
  1. METHYLERGONOVINE MALEATE [Suspect]
     Dosage: 0.2 MG, EVERY FOUR HOURS FOR SIX DOSES
     Dates: start: 19780511
  2. CHLOROTRIANISENE [Suspect]
     Dosage: 72 MG, Q12H FOR FOUR DOSES

REACTIONS (16)
  - PAIN IN EXTREMITY [None]
  - OEDEMA PERIPHERAL [None]
  - PAIN [None]
  - BLOOD CREATINE PHOSPHOKINASE INCREASED [None]
  - ACUTE LEFT VENTRICULAR FAILURE [None]
  - VENTRICULAR EXTRASYSTOLES [None]
  - PERICARDIAL EFFUSION [None]
  - MUSCLE TIGHTNESS [None]
  - ACUTE MYOCARDIAL INFARCTION [None]
  - CHEST PAIN [None]
  - HEART SOUNDS ABNORMAL [None]
  - PARAESTHESIA [None]
  - PALLOR [None]
  - CARDIAC MURMUR [None]
  - NAUSEA [None]
  - INTRACARDIAC THROMBUS [None]
